FAERS Safety Report 5042970-7 (Version None)
Quarter: 2006Q2

REPORT INFORMATION
  Report Type: 
  Country: None (occurrence: None)
  Receive Date: 20060627
  Receipt Date: 20060614
  Transmission Date: 20061013
  Serious: Yes (Other)
  Sender: FDA-Public Use
  Company Number: 200612568GDS

PATIENT
  Age: 74 Year
  Sex: Female

DRUGS (5)
  1. CIPROFLOXACIN [Suspect]
     Indication: URINARY TRACT INFECTION
     Dosage: ORAL
     Route: 048
     Dates: start: 20060604, end: 20060605
  2. CLEXANE [Concomitant]
  3. TAPAZOLE [Concomitant]
  4. ESOPRAL [Concomitant]
  5. DRONAL [Concomitant]

REACTIONS (2)
  - NYSTAGMUS [None]
  - VERTIGO [None]
